FAERS Safety Report 4512269-3 (Version None)
Quarter: 2004Q4

REPORT INFORMATION
  Report Type: 
  Country: None (occurrence: None)
  Receive Date: 20041129
  Receipt Date: 20040809
  Transmission Date: 20050328
  Serious: Yes (Hospitalization)
  Sender: FDA-Public Use
  Company Number: US-GLAXOSMITHKLINE-A0521587A

PATIENT
  Age: 11 Year
  Sex: Male
  Weight: 31.8 kg

DRUGS (13)
  1. RETROVIR [Suspect]
     Indication: HIV INFECTION
     Route: 065
     Dates: start: 20040408, end: 20040604
  2. VIREAD [Concomitant]
     Indication: ILL-DEFINED DISORDER
     Route: 048
     Dates: start: 20040408
  3. AMPRENAVIR [Concomitant]
     Indication: ILL-DEFINED DISORDER
     Dosage: 3CAP TWICE PER DAY
     Route: 048
     Dates: start: 20040408
  4. NORVIR [Concomitant]
     Indication: ILL-DEFINED DISORDER
     Dosage: 10MG TWICE PER DAY
     Route: 048
     Dates: start: 20040408
  5. FUZEON [Concomitant]
     Indication: ILL-DEFINED DISORDER
     Dosage: 63MG TWICE PER DAY
     Route: 058
     Dates: start: 20040408
  6. BACTRIM [Concomitant]
     Dosage: 1.5TSP PER DAY
     Route: 048
  7. ZITHROMAX [Concomitant]
     Indication: ILL-DEFINED DISORDER
     Route: 048
  8. PREDNISONE [Concomitant]
     Indication: ILL-DEFINED DISORDER
     Dosage: 10MG PER DAY
     Route: 048
  9. FOLIC ACID [Concomitant]
     Dosage: 1MG PER DAY
     Route: 048
  10. IRON SULFATETHIAMIN COMPOUND TAB [Concomitant]
     Indication: ILL-DEFINED DISORDER
     Dosage: 325MG THREE TIMES PER DAY
  11. NEPHRO-VITE [Concomitant]
     Indication: ILL-DEFINED DISORDER
  12. ROCALTROL [Concomitant]
     Indication: ILL-DEFINED DISORDER
  13. EPOGEN [Concomitant]

REACTIONS (8)
  - ANAEMIA HAEMOLYTIC AUTOIMMUNE [None]
  - BLOOD CREATININE INCREASED [None]
  - BLOOD UREA INCREASED [None]
  - CHILLS [None]
  - FATIGUE [None]
  - HAEMOGLOBIN DECREASED [None]
  - HYPERSOMNIA [None]
  - IMMUNE RECONSTITUTION SYNDROME [None]
